FAERS Safety Report 7543970-5 (Version None)
Quarter: 2011Q2

REPORT INFORMATION
  Report Type: 
  Country: None (occurrence: None)
  Receive Date: 20110613
  Receipt Date: 20041020
  Transmission Date: 20111010
  Serious: Yes (Hospitalization)
  Sender: FDA-Public Use
  Company Number: PHHO2004JP04963

PATIENT
  Sex: Male
  Weight: 61 kg

DRUGS (8)
  1. DOXAZOSIN MESYLATE [Concomitant]
     Indication: HYPERTENSION
     Dosage: 1 MG, UNK
     Route: 048
     Dates: start: 19940322
  2. DIOVAN [Suspect]
     Indication: HYPERTENSION
     Dosage: 40 MG, QD
     Route: 048
     Dates: start: 20020902
  3. ASPIRIN [Concomitant]
     Indication: ANGINA PECTORIS
     Dosage: 100 MG, UNK
     Route: 048
     Dates: start: 20021224
  4. URINORM [Concomitant]
  5. MEXITIL [Concomitant]
     Indication: ARRHYTHMIA
     Dosage: 300 MG, UNK
     Route: 048
     Dates: start: 20011112
  6. NIVADIL [Concomitant]
     Indication: HYPERTENSION
     Dosage: 25 MG, UNK
     Route: 048
     Dates: start: 20040105
  7. URALYT [Concomitant]
     Indication: HYPERURICAEMIA
     Route: 048
     Dates: start: 19940125
  8. ACINON [Concomitant]
     Indication: GASTRIC ULCER
     Dosage: 300 MG, UNK
     Route: 048
     Dates: start: 20000304

REACTIONS (2)
  - ATRIOVENTRICULAR BLOCK COMPLETE [None]
  - DIZZINESS [None]
